FAERS Safety Report 6317669-7 (Version None)
Quarter: 2009Q3

REPORT INFORMATION
  Report Type: 
  Country: None (occurrence: None)
  Receive Date: 20090821
  Receipt Date: 20090811
  Transmission Date: 20100115
  Serious: Yes (Hospitalization, Other)
  Sender: FDA-Public Use
  Company Number: PHHY2009IL32710

PATIENT
  Age: 8 Year
  Sex: Male
  Weight: 24 kg

DRUGS (2)
  1. EXJADE [Suspect]
     Indication: THALASSAEMIA BETA
     Dosage: 750 MG/DAY
     Route: 048
     Dates: start: 20060501, end: 20090701
  2. EXJADE [Suspect]
     Indication: IRON OVERLOAD

REACTIONS (11)
  - BLOOD CREATININE INCREASED [None]
  - DEHYDRATION [None]
  - DIARRHOEA [None]
  - FANCONI SYNDROME ACQUIRED [None]
  - GASTROENTERITIS [None]
  - GLYCOSURIA [None]
  - HYPOKALAEMIA [None]
  - HYPOPHOSPHATAEMIA [None]
  - PROTEINURIA [None]
  - PYREXIA [None]
  - VOMITING [None]
